FAERS Safety Report 9034816 (Version 1)
Quarter: 2013Q1

REPORT INFORMATION
  Report Type: Spontaneous
  Country: US (occurrence: US)
  Receive Date: 20130128
  Receipt Date: 20130128
  Transmission Date: 20140127
  Serious: Yes (Other)
  Sender: FDA-Public Use
  Company Number: US-ASTRAZENECA-2013SE03836

PATIENT
  Age: 52 Year
  Sex: Female
  Weight: 54 kg

DRUGS (5)
  1. SEROQUEL [Suspect]
     Indication: DECREASED APPETITE
     Route: 048
  2. WELLBUTRIN [Concomitant]
  3. PROZAC [Concomitant]
  4. KLONOPIN [Concomitant]
  5. COGENTIN [Concomitant]

REACTIONS (4)
  - Ataxia [Unknown]
  - Tremor [Unknown]
  - Weight increased [Unknown]
  - Off label use [Unknown]
